FAERS Safety Report 23166197 (Version 1)
Quarter: 2023Q4

REPORT INFORMATION
  Report Type: Spontaneous
  Country: US (occurrence: US)
  Receive Date: 20231109
  Receipt Date: 20231109
  Transmission Date: 20240110
  Serious: Yes (Other)
  Sender: FDA-Public Use
  Company Number: US-GE HEALTHCARE-2023CSU009964

PATIENT

DRUGS (3)
  1. OPTISON [Suspect]
     Active Substance: HUMAN ALBUMIN MICROSPHERES\PERFLUTREN
     Indication: Diagnostic procedure
     Dosage: 8 ML, SINGLE
     Route: 042
     Dates: start: 20231103, end: 20231103
  2. OPTISON [Suspect]
     Active Substance: HUMAN ALBUMIN MICROSPHERES\PERFLUTREN
     Indication: Product used for unknown indication
  3. SALINE [Concomitant]
     Active Substance: SODIUM CHLORIDE
     Dosage: 7 ML, SINGLE
     Route: 065
     Dates: start: 20231103, end: 20231103

REACTIONS (2)
  - Unresponsive to stimuli [Recovered/Resolved]
  - Dizziness [Unknown]

NARRATIVE: CASE EVENT DATE: 20231103
